FAERS Safety Report 16046750 (Version 1)
Quarter: 2019Q1

REPORT INFORMATION
  Report Type: Spontaneous
  Country: US (occurrence: US)
  Receive Date: 20190307
  Receipt Date: 20190307
  Transmission Date: 20190418
  Serious: No
  Sender: FDA-Public Use
  Company Number: US-MYLANLABS-2019M1017483

PATIENT
  Sex: Male
  Weight: 75 kg

DRUGS (1)
  1. ATROPINE,DIPHENOXYLATE MYLAN [Suspect]
     Active Substance: ATROPINE\DIPHENOXYLATE
     Indication: PRODUCT USED FOR UNKNOWN INDICATION
     Dosage: UNK

REACTIONS (3)
  - Dyspepsia [Recovered/Resolved]
  - Drug effect decreased [Recovered/Resolved]
  - Diarrhoea [Recovered/Resolved]
